FAERS Safety Report 8774808 (Version 4)
Quarter: 2013Q2

REPORT INFORMATION
  Report Type: Spontaneous
  Country: US (occurrence: US)
  Receive Date: 20120910
  Receipt Date: 20130426
  Transmission Date: 20140414
  Serious: No
  Sender: FDA-Public Use
  Company Number: US-009507513-1209USA001384

PATIENT
  Age: 64 Year
  Sex: Female

DRUGS (9)
  1. SINGULAIR [Suspect]
     Indication: ASTHMA
     Dosage: 10 MG, QD
     Route: 048
     Dates: start: 2012, end: 20120909
  2. SINGULAIR [Suspect]
     Dosage: 10 MG, QD
     Route: 048
     Dates: start: 20120925
  3. SINGULAIR [Suspect]
     Dosage: 10 MG, QD
     Route: 048
     Dates: start: 2008, end: 2012
  4. SINGULAIR [Suspect]
     Dosage: 5 MG, BID
     Route: 048
     Dates: start: 20121029
  5. MONTELUKAST SODIUM [Suspect]
     Dosage: UNK
     Dates: start: 2012, end: 2012
  6. OLANZAPINE [Concomitant]
  7. LANSOPRAZOLE [Concomitant]
  8. GABAPENTIN [Concomitant]
  9. METOPROLOL SUCCINATE [Concomitant]

REACTIONS (9)
  - Dry mouth [Unknown]
  - Eye pain [Unknown]
  - Hypersensitivity [Unknown]
  - Choking [Unknown]
  - Headache [Not Recovered/Not Resolved]
  - Tablet physical issue [Unknown]
  - Nightmare [Unknown]
  - Rhinorrhoea [Unknown]
  - Rectal haemorrhage [Unknown]
